FAERS Safety Report 10441763 (Version 5)
Quarter: 2015Q1

REPORT INFORMATION
  Report Type: Spontaneous
  Country: US (occurrence: US)
  Receive Date: 20140908
  Receipt Date: 20150309
  Transmission Date: 20150720
  Serious: Yes (Hospitalization, Other)
  Sender: FDA-Public Use
  Company Number: US-PFIZER INC-2014249047

PATIENT
  Age: 76 Year
  Sex: Female
  Weight: 86 kg

DRUGS (15)
  1. LYRICA [Suspect]
     Active Substance: PREGABALIN
     Indication: NEUROPATHY PERIPHERAL
  2. VITAMIN B COMPLEX [Concomitant]
     Active Substance: CYANOCOBALAMIN\DEXPANTHENOL\NIACINAMIDE\PYRIDOXINE HYDROCHLORIDE\RIBOFLAVIN 5^-PHOSPHATE SODIUM\THIAMINE HYDROCHLORIDE\VITAMIN B COMPLEX
     Dosage: 1X EVERY OTHER DAY
  3. LYRICA [Suspect]
     Active Substance: PREGABALIN
     Indication: FIBROMYALGIA
     Dosage: 100 MG, 3X/DAY
     Dates: start: 2011
  4. ALPHA LIPOIC ACID [Concomitant]
     Active Substance: .ALPHA.-LIPOIC ACID
     Dosage: 250 MG, 1X/DAY
  5. RESTASIS [Concomitant]
     Active Substance: CYCLOSPORINE
     Dosage: UNK, 1X/DAY (1 X DAILY W/LUNCH)
  6. ATORVASTATIN [Concomitant]
     Active Substance: ATORVASTATIN
     Dosage: 10 MG, UNK
     Dates: end: 201312
  7. RED YEAST RICE [Concomitant]
     Active Substance: DIETARY SUPPLEMENT
     Dosage: 2 DF, 1X/DAY
     Dates: start: 201410
  8. CARVEDILOL. [Concomitant]
     Active Substance: CARVEDILOL
     Dosage: 6.25 MG, UNK
     Dates: start: 20140211
  9. HYDROCODONE W/ACETAMINOPHEN [Concomitant]
     Active Substance: ACETAMINOPHEN\HYDROCODONE BITARTRATE
     Dosage: HYDROCODONE 10MG-ACETAMINOPHEN 325 MG, 3X/DAY
     Dates: start: 20140211
  10. ASPIRIN. [Concomitant]
     Active Substance: ASPIRIN
     Dosage: UNK
     Dates: start: 201402
  11. VITAMIN A [Concomitant]
     Active Substance: VITAMIN A
     Dosage: 8000 IU, 1X/DAY
  12. RESTASIS [Concomitant]
     Active Substance: CYCLOSPORINE
     Dosage: 0.05 2 X DAILY
     Route: 048
  13. HCL-PROZYME (Z-26) [Concomitant]
     Dosage: UNK
  14. COQ 10 [Concomitant]
     Active Substance: UBIDECARENONE
     Dosage: 200 MG, 1X/DAY
     Dates: end: 201501
  15. FLUOROURACIL. [Concomitant]
     Active Substance: FLUOROURACIL
     Dosage: 5 %, 2X/DAY
     Dates: end: 201312

REACTIONS (3)
  - Cardiac valve disease [Recovered/Resolved]
  - Skin abrasion [Unknown]
  - Agitation [Unknown]

NARRATIVE: CASE EVENT DATE: 201402
